FAERS Safety Report 5622423-5 (Version None)
Quarter: 2008Q1

REPORT INFORMATION
  Report Type: 
  Country: None (occurrence: None)
  Receive Date: 20080114
  Receipt Date: 20070810
  Transmission Date: 20080703
  Serious: Yes (Other)
  Sender: FDA-Public Use
  Company Number: A03200705121

PATIENT
  Age: 51 Year
  Sex: Male
  Weight: 93 kg

DRUGS (12)
  1. PLAVIX [Suspect]
     Indication: ACUTE CORONARY SYNDROME
     Dosage: GIVEN 300MG AT 9:16AM FOLLOWED BY ANOTHER 300MG AT 9:37AM UNK-ORAL
     Route: 048
     Dates: start: 20070806
  2. PLAVIX [Suspect]
     Indication: PERCUTANEOUS CORONARY INTERVENTION
     Dosage: GIVEN 300MG AT 9:16AM FOLLOWED BY ANOTHER 300MG AT 9:37AM UNK-ORAL
     Route: 048
     Dates: start: 20070806
  3. LOVENOX [Suspect]
     Indication: ACUTE CORONARY SYNDROME
     Dosage: 0.5 MG/KG GIVEN ONCE AT 8:40 AM - INTRAVENOUS NOS
     Route: 042
     Dates: start: 20070806, end: 20070806
  4. LOVENOX [Suspect]
     Indication: ANTICOAGULANT THERAPY
     Dosage: 0.5 MG/KG GIVEN ONCE AT 8:40 AM - INTRAVENOUS NOS
     Route: 042
     Dates: start: 20070806, end: 20070806
  5. LOVENOX [Suspect]
     Indication: PERCUTANEOUS CORONARY INTERVENTION
     Dosage: 0.5 MG/KG GIVEN ONCE AT 8:40 AM - INTRAVENOUS NOS
     Route: 042
     Dates: start: 20070806, end: 20070806
  6. LOVENOX [Suspect]
     Indication: ACUTE CORONARY SYNDROME
     Dosage: 0.5 MG/KG GIVEN ONCE SEVERAL HOURS AFTER 8:40 AM - SUBCUTANEOUS
     Route: 058
     Dates: start: 20070806, end: 20070806
  7. LOVENOX [Suspect]
     Indication: ANTICOAGULANT THERAPY
     Dosage: 0.5 MG/KG GIVEN ONCE SEVERAL HOURS AFTER 8:40 AM - SUBCUTANEOUS
     Route: 058
     Dates: start: 20070806, end: 20070806
  8. LOVENOX [Suspect]
     Indication: PERCUTANEOUS CORONARY INTERVENTION
     Dosage: 0.5 MG/KG GIVEN ONCE SEVERAL HOURS AFTER 8:40 AM - SUBCUTANEOUS
     Route: 058
     Dates: start: 20070806, end: 20070806
  9. INTEGRILIN [Suspect]
     Indication: ACUTE CORONARY SYNDROME
     Dosage: BOLUS FOLLOWED BY AN INFUSION. - SUBCUTANEOUS
     Route: 058
     Dates: start: 20070806
  10. INTEGRILIN [Suspect]
     Indication: PERCUTANEOUS CORONARY INTERVENTION
     Dosage: BOLUS FOLLOWED BY AN INFUSION. - SUBCUTANEOUS
     Route: 058
     Dates: start: 20070806
  11. ASPIRIN [Suspect]
     Indication: ACUTE CORONARY SYNDROME
     Dates: start: 20070806
  12. ASPIRIN [Suspect]
     Indication: PERCUTANEOUS CORONARY INTERVENTION
     Dates: start: 20070806

REACTIONS (3)
  - DRUG INEFFECTIVE [None]
  - OVERDOSE [None]
  - THROMBOSIS IN DEVICE [None]
